FAERS Safety Report 25500565 (Version 2)
Quarter: 2025Q3

REPORT INFORMATION
  Report Type: Report from Study
  Country: US (occurrence: US)
  Receive Date: 20250701
  Receipt Date: 20250826
  Transmission Date: 20251021
  Serious: Yes (Other)
  Sender: BAYER HEALTHCARE PHARMACEUTICALS INC.
  Company Number: US-BAYER-2025A078333

PATIENT
  Age: 49 Year
  Sex: Female

DRUGS (6)
  1. ADEMPAS [Suspect]
     Active Substance: RIOCIGUAT
     Indication: Pulmonary arterial hypertension
  2. ADEMPAS [Suspect]
     Active Substance: RIOCIGUAT
     Indication: Pulmonary arterial hypertension
     Dosage: 2.5 MG, TID
     Route: 048
     Dates: start: 202503
  3. UPTRAVI [Suspect]
     Active Substance: SELEXIPAG
     Dosage: 200 ?G, BID
  4. AMBRISENTAN [Concomitant]
     Active Substance: AMBRISENTAN
  5. WINREVAIR [Concomitant]
     Active Substance: SOTATERCEPT-CSRK
  6. TYVASO DPI [Concomitant]
     Active Substance: TREPROSTINIL

REACTIONS (19)
  - Catheterisation cardiac [Unknown]
  - General physical health deterioration [None]
  - Loss of consciousness [None]
  - Bendopnoea [None]
  - Dizziness [Recovered/Resolved]
  - Chest pain [None]
  - Fatigue [None]
  - Fluid retention [None]
  - Intra-abdominal fluid collection [None]
  - Abnormal weight gain [None]
  - Mood altered [None]
  - Dyspnoea [None]
  - Dyspnoea exertional [None]
  - Oedema peripheral [None]
  - Restless legs syndrome [Recovering/Resolving]
  - Myalgia [Recovering/Resolving]
  - Skin burning sensation [Recovering/Resolving]
  - Pyrexia [Recovering/Resolving]
  - Dizziness postural [Recovering/Resolving]

NARRATIVE: CASE EVENT DATE: 20250101
